FAERS Safety Report 7960446-1 (Version None)
Quarter: 2011Q4

REPORT INFORMATION
  Report Type: 
  Country: None (occurrence: None)
  Receive Date: 20111206
  Receipt Date: 20111128
  Transmission Date: 20120403
  Serious: Yes (Life-Threatening)
  Sender: FDA-Public Use
  Company Number: GB-PFIZER INC-2011294816

PATIENT
  Age: 32 Year
  Sex: Male

DRUGS (1)
  1. MORPHINE SULFATE [Suspect]
     Indication: PAIN
     Dosage: 2 TABLETS EVERY 12 HOURS
     Dates: start: 20110913

REACTIONS (2)
  - LOSS OF CONSCIOUSNESS [None]
  - NASOPHARYNGITIS [None]
